FAERS Safety Report 7156946-7 (Version None)
Quarter: 2010Q4

REPORT INFORMATION
  Report Type: 
  Country: None (occurrence: None)
  Receive Date: 20101214
  Receipt Date: 20100115
  Transmission Date: 20110411
  Serious: No
  Sender: FDA-Public Use
  Company Number: US-ASTRAZENECA-2010SE02156

PATIENT
  Age: 710 Month
  Sex: Female
  Weight: 63.5 kg

DRUGS (4)
  1. CRESTOR [Suspect]
     Route: 048
     Dates: start: 20050101
  2. ADVIL [Concomitant]
  3. VAGIFEM [Concomitant]
  4. ZYRTEC [Concomitant]

REACTIONS (2)
  - COLITIS COLLAGENOUS [None]
  - DIARRHOEA [None]
